FAERS Safety Report 10181321 (Version 1)
Quarter: 2014Q2

REPORT INFORMATION
  Report Type: Spontaneous
  Country: US (occurrence: US)
  Receive Date: 20140519
  Receipt Date: 20140519
  Transmission Date: 20141212
  Serious: No
  Sender: FDA-Public Use
  Company Number: US-AMGEN INC.-USASP2014032783

PATIENT
  Age: 80 Year
  Sex: Female

DRUGS (14)
  1. PROLIA [Suspect]
     Indication: OSTEOPOROSIS POSTMENOPAUSAL
     Dosage: UNK
     Route: 065
  2. SIMVASTATIN [Concomitant]
     Dosage: 40 MG, UNK
  3. ZOLPIDEM [Concomitant]
  4. BENICAR [Concomitant]
     Dosage: 40 MG, UNK
  5. SINGULAIR [Concomitant]
     Dosage: 10 MG, UNK
  6. PILOCARPINE [Concomitant]
  7. ESTRADIOL [Concomitant]
     Dosage: 0.05 MG, UNK
  8. OMEPRAZOLE [Concomitant]
     Dosage: 20 MG, UNK
  9. ASPIRIN [Concomitant]
  10. CALCIUM [Concomitant]
  11. VITAMIN D                          /00107901/ [Concomitant]
  12. FISH OIL [Concomitant]
  13. TYLENOL                            /00020001/ [Concomitant]
  14. B12                                /00056201/ [Concomitant]

REACTIONS (8)
  - Acne [Unknown]
  - Lethargy [Unknown]
  - Adverse drug reaction [Unknown]
  - Peripheral swelling [Unknown]
  - Rash pruritic [Unknown]
  - Cough [Unknown]
  - Arthralgia [Unknown]
  - Urticaria [Unknown]
